FAERS Safety Report 6249037-0 (Version None)
Quarter: 2009Q2

REPORT INFORMATION
  Report Type: 
  Country: None (occurrence: None)
  Receive Date: 20090629
  Receipt Date: 20090624
  Transmission Date: 20091009
  Serious: Yes (Other)
  Sender: FDA-Public Use
  Company Number: DE-ABBOTT-09P-062-0581716-00

PATIENT
  Sex: Female

DRUGS (1)
  1. ERGENYL CHRONO TABLETS [Suspect]
     Indication: EPILEPSY
     Route: 048
     Dates: start: 20081201

REACTIONS (1)
  - PORTAL VEIN THROMBOSIS [None]
